FAERS Safety Report 12046572 (Version 2)
Quarter: 2016Q2

REPORT INFORMATION
  Report Type: Report from Study
  Country: US (occurrence: US)
  Receive Date: 20160209
  Receipt Date: 20160407
  Transmission Date: 20160815
  Serious: Yes (Hospitalization, Other)
  Sender: FDA-Public Use
  Company Number: US-AMGEN-USASL2016012998

PATIENT
  Age: 60 Year
  Sex: Female

DRUGS (1)
  1. ENBREL [Suspect]
     Active Substance: ETANERCEPT
     Indication: RHEUMATOID ARTHRITIS
     Dosage: 50 MG, WEEKLY
     Route: 065
     Dates: start: 2008

REACTIONS (13)
  - Hospitalisation [Unknown]
  - Bursitis [Unknown]
  - Emphysema [Unknown]
  - Pain in extremity [Unknown]
  - Joint swelling [Unknown]
  - White blood cell count decreased [Unknown]
  - Migraine [Not Recovered/Not Resolved]
  - Bacterial infection [Unknown]
  - Wheelchair user [Unknown]
  - Osteoarthritis [Unknown]
  - Injection site pain [Unknown]
  - Abdominal hernia [Unknown]
  - Drug dose omission [Unknown]

NARRATIVE: CASE EVENT DATE: 2008
